FAERS Safety Report 9412920 (Version 1)
Quarter: 2013Q3

REPORT INFORMATION
  Report Type: Spontaneous
  Country: JP (occurrence: JP)
  Receive Date: 20130722
  Receipt Date: 20130722
  Transmission Date: 20140515
  Serious: Yes (Other)
  Sender: FDA-Public Use
  Company Number: JP-ROCHE-1250282

PATIENT
  Sex: Female

DRUGS (1)
  1. ACTEMRA [Suspect]
     Indication: CASTLEMAN^S DISEASE
     Route: 065
     Dates: start: 201302

REACTIONS (5)
  - Wrist fracture [Unknown]
  - Joint stiffness [Unknown]
  - Local swelling [Unknown]
  - Pain in extremity [Unknown]
  - Wrong technique in drug usage process [Unknown]
